FAERS Safety Report 7151298-0 (Version None)
Quarter: 2010Q4

REPORT INFORMATION
  Report Type: 
  Country: None (occurrence: None)
  Receive Date: 20101207
  Receipt Date: 20101207
  Transmission Date: 20110411
  Serious: No
  Sender: FDA-Public Use
  Company Number: None

PATIENT
  Age: 36 Year
  Sex: Female
  Weight: 61.2356 kg

DRUGS (3)
  1. ZOLOFT [Suspect]
     Indication: DYSTHYMIC DISORDER
     Dosage: TITRATED UP FROM 12.5MG UP TO 75MG. - 1X/DAY PO
     Route: 048
     Dates: start: 20100901, end: 20101101
  2. ZOLOFT [Suspect]
     Indication: GENERALISED ANXIETY DISORDER
     Dosage: TITRATED UP FROM 12.5MG UP TO 75MG. - 1X/DAY PO
     Route: 048
     Dates: start: 20100901, end: 20101101
  3. ZOLOFT [Suspect]
     Indication: OBSESSIVE-COMPULSIVE DISORDER
     Dosage: TITRATED UP FROM 12.5MG UP TO 75MG. - 1X/DAY PO
     Route: 048
     Dates: start: 20100901, end: 20101101

REACTIONS (7)
  - AKATHISIA [None]
  - ALOPECIA [None]
  - DRY MOUTH [None]
  - FEELING ABNORMAL [None]
  - NIGHTMARE [None]
  - SUICIDAL IDEATION [None]
  - TREMOR [None]
